FAERS Safety Report 6713681-4 (Version None)
Quarter: 2010Q2

REPORT INFORMATION
  Report Type: 
  Country: None (occurrence: None)
  Receive Date: 20100426
  Receipt Date: 20100216
  Transmission Date: 20101027
  Serious: Yes (Hospitalization)
  Sender: FDA-Public Use
  Company Number: 2009BI039836

PATIENT
  Age: 54 Year
  Sex: Male
  Weight: 71.6683 kg

DRUGS (3)
  1. TYSABRI [Suspect]
     Indication: MULTIPLE SCLEROSIS
     Dosage: 300 MG; QM. IV
     Route: 042
     Dates: start: 20080616
  2. CON MEDS [Concomitant]
  3. AVONEX (PREV.) [Concomitant]

REACTIONS (3)
  - FALL [None]
  - JOINT INJURY [None]
  - MULTIPLE SCLEROSIS RELAPSE [None]
